FAERS Safety Report 4421368-6 (Version None)
Quarter: 2004Q3

REPORT INFORMATION
  Report Type: 
  Country: None (occurrence: None)
  Receive Date: 20040706
  Receipt Date: 20040512
  Transmission Date: 20050211
  Serious: Yes (Hospitalization)
  Sender: FDA-Public Use
  Company Number: 236979

PATIENT
  Age: 63 Year
  Sex: Male
  Weight: 69.4 kg

DRUGS (9)
  1. NOVOLOG [Suspect]
     Indication: DIABETES MELLITUS INSULIN-DEPENDENT
     Dosage: 9.6 IU, QD, SUBCUTANEOUS
     Route: 058
     Dates: start: 20040420, end: 20040428
  2. NOVOLOG [Suspect]
     Dosage: 6 IU, SINGLE, SUBCUTANEOUS
     Route: 058
     Dates: start: 20040428, end: 20040428
  3. MINIMED INSULIN PUMP [Concomitant]
  4. LEVOXYL [Concomitant]
  5. WELCHOL [Concomitant]
  6. ZETIA [Concomitant]
  7. AVAPRO [Concomitant]
  8. ACETYLSALICYLIC ACID SRT [Concomitant]
  9. LACTULOSE [Concomitant]

REACTIONS (1)
  - DIABETIC KETOACIDOSIS [None]
